FAERS Safety Report 13987407 (Version 1)
Quarter: 2017Q3

REPORT INFORMATION
  Report Type: Spontaneous
  Country: CN (occurrence: CN)
  Receive Date: 20170919
  Receipt Date: 20170919
  Transmission Date: 20171128
  Serious: Yes (Other)
  Sender: FDA-Public Use
  Company Number: CN-ASTRAZENECA-2017SE95268

PATIENT
  Sex: Female
  Weight: 9 kg

DRUGS (6)
  1. CHINESE TRADITIONAL MEDICINE NOS [Suspect]
     Active Substance: UNSPECIFIED INGREDIENT
     Indication: ASTHMA
     Route: 048
     Dates: start: 20170425, end: 20170426
  2. SODIUM CHLORIDE. [Concomitant]
     Active Substance: SODIUM CHLORIDE
     Indication: ASTHMA
     Route: 055
     Dates: start: 20170425, end: 20170426
  3. KETOTIFEN FUMARATE. [Suspect]
     Active Substance: KETOTIFEN FUMARATE
     Indication: ASTHMA
     Route: 048
     Dates: start: 20170425, end: 20170426
  4. BUDESONIDE. [Suspect]
     Active Substance: BUDESONIDE
     Indication: ASTHMA
     Route: 055
     Dates: start: 20170425, end: 20170426
  5. BUDESONIDE. [Suspect]
     Active Substance: BUDESONIDE
     Indication: ASTHMA
     Route: 055
     Dates: start: 20170425, end: 20170426
  6. CHINESE TRADITIONAL MEDICINE NOS [Suspect]
     Active Substance: UNSPECIFIED INGREDIENT
     Indication: ASTHMA
     Route: 048
     Dates: start: 20170425, end: 20170426

REACTIONS (4)
  - Diarrhoea [Recovering/Resolving]
  - Abdominal pain [Recovering/Resolving]
  - Flushing [Recovering/Resolving]
  - Papule [Recovering/Resolving]
